FAERS Safety Report 4351556-9 (Version None)
Quarter: 2004Q2

REPORT INFORMATION
  Report Type: 
  Country: None (occurrence: None)
  Receive Date: 20040428
  Receipt Date: 20040420
  Transmission Date: 20050107
  Serious: Yes (Hospitalization, Other)
  Sender: FDA-Public Use
  Company Number: 205812

PATIENT
  Sex: Female

DRUGS (4)
  1. RITUXAN [Suspect]
     Indication: CHRONIC LYMPHOCYTIC LEUKAEMIA
     Dosage: INTRAVENOUS
     Route: 042
     Dates: start: 20031201, end: 20031201
  2. FLUDARABINE PHOSPHATE [Suspect]
     Indication: CHRONIC LYMPHOCYTIC LEUKAEMIA
     Dosage: X3, INTRAVENOUS
     Route: 042
     Dates: start: 20031201, end: 20031201
  3. CYTOXAN [Concomitant]
  4. BETA-BLOCKER, NOS (BETA BLOCKERS NOS) [Concomitant]

REACTIONS (1)
  - NEUTROPENIA [None]
